FAERS Safety Report 4902935-X (Version None)
Quarter: 2006Q1

REPORT INFORMATION
  Report Type: 
  Country: None (occurrence: None)
  Receive Date: 20060207
  Receipt Date: 20060126
  Transmission Date: 20060701
  Serious: Yes (Hospitalization)
  Sender: FDA-Public Use
  Company Number: JP-JNJFOC-20060200358

PATIENT
  Age: 27 Year
  Sex: Female

DRUGS (1)
  1. NEOPERIDOL [Suspect]
     Indication: HALLUCINATION
     Route: 030

REACTIONS (5)
  - AGGRESSION [None]
  - HYPERKINESIA [None]
  - LOGORRHOEA [None]
  - LOOSE ASSOCIATIONS [None]
  - SLEEP DISORDER [None]
